FAERS Safety Report 7465959-7 (Version None)
Quarter: 2011Q2

REPORT INFORMATION
  Report Type: 
  Country: None (occurrence: None)
  Receive Date: 20110509
  Receipt Date: 20100507
  Transmission Date: 20111010
  Serious: No
  Sender: FDA-Public Use
  Company Number: US-ALEXION-A201000523

PATIENT
  Sex: Male
  Weight: 80.1 kg

DRUGS (1)
  1. SOLIRIS [Suspect]
     Indication: PAROXYSMAL NOCTURNAL HAEMOGLOBINURIA
     Dosage: 900 MG, Q14 DAYS
     Route: 042
     Dates: start: 20050801

REACTIONS (16)
  - CHROMATURIA [None]
  - OCULAR ICTERUS [None]
  - DIARRHOEA [None]
  - FATIGUE [None]
  - GASTROENTERITIS VIRAL [None]
  - HAEMOLYSIS [None]
  - LETHARGY [None]
  - ASTHENIA [None]
  - RESPIRATORY TRACT CONGESTION [None]
  - NASOPHARYNGITIS [None]
  - NAUSEA [None]
  - INFLUENZA [None]
  - BACK PAIN [None]
  - UPPER RESPIRATORY TRACT INFECTION [None]
  - PYREXIA [None]
  - COUGH [None]
